FAERS Safety Report 8747376 (Version 2)
Quarter: 2013Q1

REPORT INFORMATION
  Report Type: Report from Study
  Country: US (occurrence: US)
  Receive Date: 20120913
  Receipt Date: 20130114
  Transmission Date: 20140127
  Serious: No
  Sender: FDA-Public Use
  Company Number: US-VERTEX PHARMACEUTICAL INC.-AE-2012-008874

PATIENT
  Age: 69 Year
  Sex: Female

DRUGS (3)
  1. VX-950 (TELAPREVIR) [Suspect]
     Indication: HEPATITIS C
     Dosage: UNK
     Route: 048
     Dates: start: 20120511
  2. PEGASYS [Suspect]
     Indication: HEPATITIS C
     Dosage: UNK
     Dates: start: 20120511, end: 20121026
  3. RIBAVIRIN [Suspect]
     Indication: HEPATITIS C
     Dosage: UNK
     Dates: start: 20120511, end: 20121026

REACTIONS (3)
  - Fatigue [Not Recovered/Not Resolved]
  - Anaemia [Not Recovered/Not Resolved]
  - Drug ineffective [Unknown]
